FAERS Safety Report 15225979 (Version 2)
Quarter: 2018Q3

REPORT INFORMATION
  Report Type: Spontaneous
  Country: JP (occurrence: JP)
  Receive Date: 20180801
  Receipt Date: 20180823
  Transmission Date: 20181010
  Serious: Yes (Life-Threatening, Other)
  Sender: FDA-Public Use
  Company Number: JP-B.I. PHARMACEUTICALS,INC./RIDGEFIELD-2018-NB-004206

PATIENT
  Age: 94 Year
  Sex: Female

DRUGS (1)
  1. PRAZAXA [Suspect]
     Active Substance: DABIGATRAN ETEXILATE MESYLATE
     Indication: PRODUCT USED FOR UNKNOWN INDICATION
     Route: 048
     Dates: end: 20180730

REACTIONS (3)
  - Fall [Recovered/Resolved]
  - Pelvic fracture [Recovered/Resolved]
  - Intra-abdominal haemorrhage [Recovered/Resolved]

NARRATIVE: CASE EVENT DATE: 20180731
